FAERS Safety Report 17941893 (Version 1)
Quarter: 2020Q2

REPORT INFORMATION
  Report Type: Spontaneous
  Country: US (occurrence: US)
  Receive Date: 20200624
  Receipt Date: 20200624
  Transmission Date: 20200714
  Serious: Yes (Hospitalization)
  Sender: FDA-Public Use
  Company Number: None

PATIENT
  Sex: Female

DRUGS (21)
  1. CELEXA [Concomitant]
     Active Substance: CITALOPRAM HYDROBROMIDE
  2. IBUPROFEN. [Concomitant]
     Active Substance: IBUPROFEN
  3. XIIDRA [Concomitant]
     Active Substance: LIFITEGRAST
  4. DIALYVITE [Concomitant]
     Active Substance: ASCORBIC ACID\BIOTIN\CALCIUM PANTOTHENATE\COBALAMIN\FOLIC ACID\NIACINAMIDE\PYRIDOXINE HYDROCHLORIDE\RIBOFLAVIN\THIAMINE MONONITRATE
  5. MELOXICAM. [Concomitant]
     Active Substance: MELOXICAM
  6. PROMETHAZINE [Concomitant]
     Active Substance: PROMETHAZINE HYDROCHLORIDE
  7. EXCEDRIN [Concomitant]
     Active Substance: ACETAMINOPHEN\ASPIRIN\CAFFEINE
  8. FIORICET [Concomitant]
     Active Substance: ACETAMINOPHEN\BUTALBITAL\CAFFEINE
  9. FLORANEX [Concomitant]
     Active Substance: LACTOBACILLUS ACIDOPHILUS\LACTOBACILLUS DELBRUECKII SUBSP. BULGARICUS
  10. ILEVRO [Concomitant]
     Active Substance: NEPAFENAC
  11. LYRICA [Concomitant]
     Active Substance: PREGABALIN
  12. TRULANCE [Concomitant]
     Active Substance: PLECANATIDE
  13. XELJANZ [Suspect]
     Active Substance: TOFACITINIB CITRATE
     Indication: PSORIATIC ARTHROPATHY
     Route: 048
  14. HYDROCOD/IBU [Concomitant]
  15. MIDODRINE [Concomitant]
     Active Substance: MIDODRINE
  16. TIZANIDINE. [Concomitant]
     Active Substance: TIZANIDINE
  17. CLONAZEPAM. [Concomitant]
     Active Substance: CLONAZEPAM
  18. XTAMPZA ER [Concomitant]
     Active Substance: OXYCODONE
  19. CYSTINE [Concomitant]
     Active Substance: CYSTINE
  20. REGLAN [Concomitant]
     Active Substance: METOCLOPRAMIDE HYDROCHLORIDE
  21. ZOFRAN [Concomitant]
     Active Substance: ONDANSETRON HYDROCHLORIDE

REACTIONS (3)
  - Tachycardia [None]
  - Condition aggravated [None]
  - Autonomic nervous system imbalance [None]
